FAERS Safety Report 12655200 (Version 1)
Quarter: 2016Q3

REPORT INFORMATION
  Report Type: Other
  Country: FR (occurrence: FR)
  Receive Date: 20160816
  Receipt Date: 20160816
  Transmission Date: 20161109
  Serious: Yes (Life-Threatening, Hospitalization)
  Sender: FDA-Public Use
  Company Number: FR-CELLTRION INC.-2016FR003980

PATIENT

DRUGS (1)
  1. REMSIMA [Suspect]
     Active Substance: INFLIXIMAB
     Indication: ENTEROCOLITIS HAEMORRHAGIC
     Dosage: 250 MG, SINGLE
     Route: 042
     Dates: start: 20160401, end: 20160401

REACTIONS (7)
  - Erythema [None]
  - Malaise [None]
  - Off label use [Unknown]
  - Dyspnoea [None]
  - Anxiety [Recovered/Resolved]
  - Hypersensitivity [Recovered/Resolved]
  - Laryngeal discomfort [None]

NARRATIVE: CASE EVENT DATE: 20160401
